FAERS Safety Report 6288584-2 (Version None)
Quarter: 2009Q3

REPORT INFORMATION
  Report Type: 
  Country: None (occurrence: None)
  Receive Date: 20090729
  Receipt Date: 20090723
  Transmission Date: 20100115
  Serious: Yes (Disabling)
  Sender: FDA-Public Use
  Company Number: CA-ASTRAZENECA-2009UW11146

PATIENT
  Age: 61 Year
  Sex: Male

DRUGS (2)
  1. CRESTOR [Suspect]
     Route: 048
     Dates: start: 20080101, end: 20090424
  2. TYLENOL [Concomitant]

REACTIONS (8)
  - FATIGUE [None]
  - INFLUENZA [None]
  - MUSCLE ATROPHY [None]
  - MUSCLE FATIGUE [None]
  - MUSCULAR WEAKNESS [None]
  - MUSCULOSKELETAL STIFFNESS [None]
  - MYALGIA [None]
  - PYREXIA [None]
